FAERS Safety Report 4313753-8 (Version None)
Quarter: 2004Q1

REPORT INFORMATION
  Report Type: 
  Country: None (occurrence: None)
  Receive Date: 20040305
  Receipt Date: 20040220
  Transmission Date: 20041129
  Serious: Yes (Other)
  Sender: FDA-Public Use
  Company Number: 200401355

PATIENT

DRUGS (1)
  1. BOTOX [Suspect]
     Dosage: 100 UNITS PRN IM
     Route: 030

REACTIONS (9)
  - CEREBROVASCULAR ACCIDENT [None]
  - DYSPNOEA [None]
  - FATIGUE [None]
  - HYPOAESTHESIA [None]
  - KYPHOSCOLIOSIS [None]
  - MUSCULAR WEAKNESS [None]
  - PAIN [None]
  - PARALYSIS [None]
  - TRANSIENT ISCHAEMIC ATTACK [None]
